FAERS Safety Report 5154657-0 (Version None)
Quarter: 2006Q4

REPORT INFORMATION
  Report Type: 
  Country: None (occurrence: None)
  Receive Date: 20061113
  Receipt Date: 20061030
  Transmission Date: 20070319
  Serious: Yes (Other)
  Sender: FDA-Public Use
  Company Number: 2006114481

PATIENT
  Age: 73 Year
  Sex: Female

DRUGS (12)
  1. AZULFIDINE EN-TABS [Suspect]
     Indication: RHEUMATOID ARTHRITIS
     Dosage: 1000 MG (1 D) ORAL
     Route: 048
     Dates: start: 20060610
  2. MOBIC [Suspect]
     Dosage: 10 MG ORAL
     Route: 048
     Dates: start: 20060610
  3. PREDNISOLONE [Concomitant]
  4. VIT K CAP [Concomitant]
  5. CINAL (ASCORBIC ACID, CALCIUM PANTOTHENATE) [Concomitant]
  6. CALCIUM LACTATE [Concomitant]
  7. LENDORM [Concomitant]
  8. RHEUMATREX [Concomitant]
  9. LOXONIN (LOXOPROFEN SODIUM) [Concomitant]
  10. ADALAT [Concomitant]
  11. MICARDIS [Concomitant]
  12. LASIX [Concomitant]

REACTIONS (1)
  - BLOOD PRESSURE SYSTOLIC INCREASED [None]
